FAERS Safety Report 4428255-8 (Version None)
Quarter: 2004Q3

REPORT INFORMATION
  Report Type: 
  Country: None (occurrence: None)
  Receive Date: 20040813
  Receipt Date: 20040805
  Transmission Date: 20050211
  Serious: Yes (Life-Threatening, Hospitalization)
  Sender: FDA-Public Use
  Company Number: 200409104

PATIENT
  Age: 53 Year
  Sex: Male

DRUGS (7)
  1. STREPTASE [Suspect]
     Indication: ACUTE MYOCARDIAL INFARCTION
     Dosage: 1.5 MIU DAILY IV
     Route: 042
     Dates: start: 20040703, end: 20040703
  2. ASPIRIN [Suspect]
     Indication: ACUTE MYOCARDIAL INFARCTION
     Dosage: 300 MG DAILY PO
     Route: 048
     Dates: start: 20040703, end: 20040703
  3. ENOXAPARIN SODIUM [Suspect]
     Indication: ACUTE MYOCARDIAL INFARCTION
     Dosage: IV
     Route: 042
     Dates: start: 20040703, end: 20040704
  4. SIMVASTATIN [Concomitant]
  5. DULCOLAX [Concomitant]
  6. ATIVAN [Concomitant]
  7. GLIPIZIDE [Concomitant]

REACTIONS (4)
  - GASTRIC ULCER [None]
  - GASTROINTESTINAL HAEMORRHAGE [None]
  - MELAENA [None]
  - THROMBOSIS [None]
